FAERS Safety Report 4787370-X (Version None)
Quarter: 2005Q3

REPORT INFORMATION
  Report Type: 
  Country: None (occurrence: None)
  Receive Date: 20050926
  Receipt Date: 20050802
  Transmission Date: 20060218
  Serious: No
  Sender: FDA-Public Use
  Company Number: 216628

PATIENT
  Age: 60 Year
  Sex: Female

DRUGS (2)
  1. HERCEPTIN (TRASTUZUMAB) PWDR440 MG [Suspect]
     Indication: BREAST CANCER METASTATIC
     Dosage: 1/WEEK,
     Dates: start: 20050101
  2. AVASTIN [Suspect]
     Indication: BREAST CANCER METASTATIC
     Dosage: Q2W
     Dates: start: 20050101

REACTIONS (1)
  - TOOTH INFECTION [None]
